FAERS Safety Report 7662885-5 (Version None)
Quarter: 2011Q3

REPORT INFORMATION
  Report Type: 
  Country: None (occurrence: None)
  Receive Date: 20110805
  Receipt Date: 20100812
  Transmission Date: 20111222
  Serious: No
  Sender: FDA-Public Use
  Company Number: US-ABBOTT-10P-163-0663713-00

PATIENT
  Sex: Male
  Weight: 139.83 kg

DRUGS (10)
  1. NIASPAN [Suspect]
     Indication: HYPERLIPIDAEMIA
     Dates: start: 20090801
  2. KLONOPIN [Concomitant]
  3. GLYBURIDE [Concomitant]
  4. SPIRALACTONE [Concomitant]
  5. PLAVIX [Concomitant]
  6. MAVIK [Concomitant]
  7. ASPIRIN [Concomitant]
  8. SIMVASTATIN [Concomitant]
  9. COREG [Concomitant]
  10. ACTOS [Concomitant]

REACTIONS (1)
  - NEPHROLITHIASIS [None]
